FAERS Safety Report 7412745-X (Version None)
Quarter: 2011Q2

REPORT INFORMATION
  Report Type: 
  Country: None (occurrence: None)
  Receive Date: 20110413
  Receipt Date: 20110404
  Transmission Date: 20111010
  Serious: Yes (Hospitalization, Other)
  Sender: FDA-Public Use
  Company Number: A0901248A

PATIENT
  Age: 54 Year
  Sex: Male
  Weight: 112.7 kg

DRUGS (8)
  1. PREVACID [Concomitant]
     Dosage: 15MG PER DAY
     Route: 048
  2. GLIMEPIRIDE [Concomitant]
     Dosage: 8MG PER DAY
     Route: 048
  3. HYZAAR [Concomitant]
     Indication: HYPERTENSION
     Route: 048
  4. VYTORIN [Concomitant]
     Route: 048
  5. GLUCOPHAGE [Concomitant]
     Dosage: 1000MG TWICE PER DAY
     Route: 048
  6. PRAVACHOL [Concomitant]
     Dosage: 40MG PER DAY
     Route: 048
  7. AVANDIA [Suspect]
  8. ASPIRIN [Concomitant]
     Indication: CORONARY ARTERY DISEASE
     Dosage: 81MG PER DAY
     Route: 048

REACTIONS (3)
  - MYOCARDIAL INFARCTION [None]
  - CORONARY ARTERY DISEASE [None]
  - CORONARY ARTERY BYPASS [None]
